FAERS Safety Report 9463721 (Version 3)
Quarter: 2013Q4

REPORT INFORMATION
  Report Type: Spontaneous
  Country: US (occurrence: None)
  Receive Date: 20130819
  Receipt Date: 20131217
  Transmission Date: 20140711
  Serious: No
  Sender: FDA-Public Use
  Company Number: PHEH2013US007771

PATIENT
  Age: 41 Year
  Sex: Female
  Weight: 55 kg

DRUGS (1)
  1. SIGNIFOR [Suspect]
     Indication: HYPOGLYCAEMIA
     Dosage: .09 U, BID, INJECTION NOS

REACTIONS (12)
  - Fall [None]
  - Malaise [None]
  - Dizziness [None]
  - Abdominal discomfort [None]
  - Constipation [None]
  - Weight decreased [None]
  - Diarrhoea [None]
  - Nausea [None]
  - Abdominal pain [None]
  - Headache [None]
  - Fatigue [None]
  - Vomiting [None]
